FAERS Safety Report 15713814 (Version 1)
Quarter: 2018Q4

REPORT INFORMATION
  Report Type: Spontaneous
  Country: US (occurrence: US)
  Receive Date: 20181212
  Receipt Date: 20181212
  Transmission Date: 20190205
  Serious: Yes (Hospitalization)
  Sender: FDA-Public Use
  Company Number: US-PRINSTON PHARMACEUTICAL INC.-2018PRN01703

PATIENT
  Sex: Female

DRUGS (2)
  1. VALSARTAN. [Suspect]
     Active Substance: VALSARTAN
     Dosage: UNK
  2. LOSARTAN POTASSIUM (LUPIN) [Suspect]
     Active Substance: LOSARTAN POTASSIUM
     Dosage: 50 MG, 1X/DAY

REACTIONS (17)
  - Tongue disorder [Unknown]
  - Feeding disorder [Unknown]
  - Coating in mouth [Unknown]
  - Gastrointestinal disorder [Unknown]
  - Rash macular [Unknown]
  - Hypersensitivity [Unknown]
  - Dysgeusia [Unknown]
  - Vein disorder [Unknown]
  - Musculoskeletal disorder [Unknown]
  - Dry mouth [Unknown]
  - Angina pectoris [Unknown]
  - Staphylococcal infection [Unknown]
  - Infection [Unknown]
  - Liver disorder [Unknown]
  - Pyrexia [Unknown]
  - Fungal infection [Unknown]
  - Throat irritation [Unknown]
